FAERS Safety Report 17260822 (Version 1)
Quarter: 2020Q1

REPORT INFORMATION
  Report Type: Spontaneous
  Country: CA (occurrence: CA)
  Receive Date: 20200113
  Receipt Date: 20200113
  Transmission Date: 20200409
  Serious: Yes (Other)
  Sender: FDA-Public Use
  Company Number: CA-ORION CORPORATION ORION PHARMA-TREX2019-0294

PATIENT
  Sex: Female
  Weight: 120 kg

DRUGS (1)
  1. METHOTREXATE (TRADE NAME UNKNOWN) [Suspect]
     Active Substance: METHOTREXATE
     Indication: PRODUCT USED FOR UNKNOWN INDICATION
     Route: 065

REACTIONS (6)
  - Overweight [Unknown]
  - Hypertension [Unknown]
  - Drug hypersensitivity [Unknown]
  - Swelling face [Unknown]
  - Urticaria [Unknown]
  - Diabetes mellitus [Unknown]
